FAERS Safety Report 4502004-7 (Version None)
Quarter: 2004Q4

REPORT INFORMATION
  Report Type: 
  Country: None (occurrence: None)
  Receive Date: 20041116
  Receipt Date: 20041109
  Transmission Date: 20050328
  Serious: Yes (Death)
  Sender: FDA-Public Use
  Company Number: JP-BRISTOL-MYERS SQUIBB COMPANY-12761771

PATIENT
  Age: 69 Year
  Sex: Male

DRUGS (1)
  1. TAXOL [Suspect]
     Indication: PANCREATIC CARCINOMA
     Route: 041
     Dates: start: 20040430, end: 20040430

REACTIONS (1)
  - INTERSTITIAL LUNG DISEASE [None]
